FAERS Safety Report 6079285-4 (Version None)
Quarter: 2009Q1

REPORT INFORMATION
  Report Type: 
  Country: None (occurrence: None)
  Receive Date: 20090216
  Receipt Date: 20090205
  Transmission Date: 20090719
  Serious: Yes (Hospitalization)
  Sender: FDA-Public Use
  Company Number: BE-ELI_LILLY_AND_COMPANY-BE200812006154

PATIENT
  Sex: Female
  Weight: 77 kg

DRUGS (2)
  1. ATOMOXETINE HCL [Suspect]
     Indication: ATTENTION DEFICIT/HYPERACTIVITY DISORDER
     Dosage: 80 MG, DAILY (1/D)
     Route: 048
     Dates: start: 20081107, end: 20081226
  2. ATOMOXETINE HCL [Suspect]
     Dosage: 80 MG, DAILY (1/D)
     Route: 048
     Dates: start: 20080819, end: 20081106

REACTIONS (2)
  - ALCOHOL ABUSE [None]
  - RESTLESSNESS [None]
